FAERS Safety Report 5952109-9 (Version None)
Quarter: 2008Q4

REPORT INFORMATION
  Report Type: 
  Country: None (occurrence: None)
  Receive Date: 20081113
  Receipt Date: 20080424
  Transmission Date: 20090506
  Serious: No
  Sender: FDA-Public Use
  Company Number: A0724531A

PATIENT
  Age: 56 Year
  Sex: Female

DRUGS (10)
  1. COREG [Suspect]
     Indication: EJECTION FRACTION DECREASED
     Dosage: 25MG TWICE PER DAY
     Route: 048
     Dates: start: 20050601, end: 20080201
  2. COREG CR [Suspect]
     Indication: EJECTION FRACTION DECREASED
     Dosage: 80MG PER DAY
     Route: 048
     Dates: start: 20080201
  3. XANAX [Concomitant]
  4. VASOTEC [Concomitant]
  5. CENTRUM SILVER [Concomitant]
  6. CALTRATE PLUS D [Concomitant]
  7. CITRUCEL [Concomitant]
  8. FISH OIL [Concomitant]
  9. CO Q10 [Concomitant]
  10. IMODIUM [Concomitant]

REACTIONS (5)
  - DRUG INEFFECTIVE [None]
  - EJECTION FRACTION DECREASED [None]
  - FATIGUE [None]
  - MALAISE [None]
  - WEIGHT INCREASED [None]
